FAERS Safety Report 13611422 (Version 3)
Quarter: 2017Q3

REPORT INFORMATION
  Report Type: Spontaneous
  Country: BG (occurrence: BG)
  Receive Date: 20170605
  Receipt Date: 20170722
  Transmission Date: 20171127
  Serious: Yes (Death, Other)
  Sender: FDA-Public Use
  Company Number: BG-009507513-1705BGR015953

PATIENT
  Sex: Male

DRUGS (1)
  1. KEYTRUDA [Suspect]
     Active Substance: PEMBROLIZUMAB
     Indication: LUNG NEOPLASM MALIGNANT
     Dosage: UNK
     Dates: start: 2017, end: 2017

REACTIONS (4)
  - Product use in unapproved indication [Unknown]
  - Respiratory failure [Fatal]
  - Pleural effusion [Fatal]
  - Weight decreased [Unknown]

NARRATIVE: CASE EVENT DATE: 2017
